FAERS Safety Report 9942523 (Version 1)
Quarter: 2014Q1

REPORT INFORMATION
  Report Type: Report from Study
  Country: US (occurrence: US)
  Receive Date: 20140303
  Receipt Date: 20140303
  Transmission Date: 20141002
  Serious: No
  Sender: FDA-Public Use
  Company Number: US-ABBVIE-13P-163-1043998-00

PATIENT
  Age: 50 Year
  Sex: Female

DRUGS (9)
  1. HUMIRA [Suspect]
     Indication: PSORIATIC ARTHROPATHY
     Dates: start: 201204, end: 201207
  2. HUMIRA [Suspect]
     Dates: start: 201207, end: 201212
  3. PREDNISONE [Concomitant]
     Indication: PSORIATIC ARTHROPATHY
  4. TOPROL [Concomitant]
     Indication: HYPERTENSION
  5. ASPIRIN [Concomitant]
     Indication: CARDIOVASCULAR EVENT PROPHYLAXIS
  6. FOLIC ACID [Concomitant]
     Indication: VITAMIN SUPPLEMENTATION
  7. METHOTREXATE [Concomitant]
     Indication: PSORIATIC ARTHROPATHY
  8. ADVAIR [Concomitant]
     Indication: ASTHMA
  9. REMICADE [Concomitant]
     Indication: PSORIATIC ARTHROPATHY
     Dates: start: 20121221

REACTIONS (1)
  - Drug ineffective [Recovered/Resolved]
